FAERS Safety Report 10279377 (Version 3)
Quarter: 2014Q3

REPORT INFORMATION
  Report Type: Spontaneous
  Country: JP (occurrence: JP)
  Receive Date: 20140707
  Receipt Date: 20140801
  Transmission Date: 20150326
  Serious: Yes (Hospitalization, Other)
  Sender: FDA-Public Use
  Company Number: PHHY2014JP021179

PATIENT
  Age: 74 Year
  Sex: Female
  Weight: 42 kg

DRUGS (2)
  1. GLIVEC [Suspect]
     Active Substance: IMATINIB MESYLATE
     Indication: GASTROINTESTINAL STROMAL TUMOUR
     Dosage: 400 MG, DAILY
     Route: 048
     Dates: start: 20131204, end: 20131227
  2. GLIVEC [Suspect]
     Active Substance: IMATINIB MESYLATE
     Dosage: 200 MG, DAILY
     Route: 048
     Dates: start: 20140115, end: 20140129

REACTIONS (10)
  - Dry skin [Recovered/Resolved]
  - Pruritus generalised [Recovered/Resolved]
  - Oedema peripheral [Recovered/Resolved]
  - Neutrophil count decreased [Recovered/Resolved]
  - Weight increased [Unknown]
  - Pleural effusion [Recovered/Resolved]
  - Rash [Recovered/Resolved]
  - Eosinophil count increased [Unknown]
  - Feeling abnormal [Recovered/Resolved]
  - Pulmonary oedema [Recovered/Resolved]

NARRATIVE: CASE EVENT DATE: 20131218
